FAERS Safety Report 12072424 (Version 1)
Quarter: 2016Q1

REPORT INFORMATION
  Report Type: Spontaneous
  Country: US (occurrence: None)
  Receive Date: 20160211
  Receipt Date: 20160211
  Transmission Date: 20160526
  Serious: Yes (Disabling, Other)
  Sender: FDA-Public Use
  Company Number: None

PATIENT
  Age: 37 Year
  Sex: Male
  Weight: 74.84 kg

DRUGS (11)
  1. MALIGDIUM [Concomitant]
  2. MAGNESIUM [Concomitant]
     Active Substance: MAGNESIUM
  3. GABA [Concomitant]
     Active Substance: .GAMMA.-AMINOBUTYRIC ACID
  4. CO-Q19 [Concomitant]
  5. CIPROFLOXACIN. [Suspect]
     Active Substance: CIPROFLOXACIN
     Indication: PROSTATITIS
     Dosage: 1 TABLET, TWICE DAILY, TAKEN BY MOUTH
     Dates: start: 20111223, end: 20120203
  6. MULTIVITAMIN [Concomitant]
     Active Substance: VITAMINS
  7. OMEGA-3 ACIDS [Concomitant]
     Active Substance: OMEGA-3 FATTY ACIDS
  8. PROBIOTIC [Concomitant]
     Active Substance: PROBIOTICS NOS
  9. MIDODRINE [Concomitant]
     Active Substance: MIDODRINE
  10. TESTOSTERONE. [Concomitant]
     Active Substance: TESTOSTERONE
  11. N-ACETYLCYSTEINE [Concomitant]
     Active Substance: ACETYLCYSTEINE

REACTIONS (3)
  - Pain in extremity [None]
  - Musculoskeletal pain [None]
  - Tendon pain [None]

NARRATIVE: CASE EVENT DATE: 20111223
